FAERS Safety Report 10657525 (Version 1)
Quarter: 2014Q4

REPORT INFORMATION
  Report Type: Spontaneous
  Country: JP (occurrence: None)
  Receive Date: 20141215
  Receipt Date: 20141215
  Transmission Date: 20150529
  Serious: Yes (Other)
  Sender: FDA-Public Use
  Company Number: JP-2014VAL000480

PATIENT
  Age: 28 Year
  Sex: Female

DRUGS (2)
  1. METOPROLOL TARTRATE. [Suspect]
     Active Substance: METOPROLOL TARTRATE
     Indication: HYPERTENSION
  2. AMLODIPINE [Suspect]
     Active Substance: AMLODIPINE BESYLATE
     Indication: HYPERTENSION

REACTIONS (7)
  - Foetal growth restriction [None]
  - Pre-eclampsia [None]
  - Blood pressure inadequately controlled [None]
  - Proteinuria [None]
  - Drug ineffective [None]
  - Abortion spontaneous [None]
  - Maternal exposure during pregnancy [None]
